FAERS Safety Report 20163031 (Version 2)
Quarter: 2022Q1

REPORT INFORMATION
  Report Type: Spontaneous
  Country: PT (occurrence: PT)
  Receive Date: 20211209
  Receipt Date: 20220124
  Transmission Date: 20220424
  Serious: Yes (Other)
  Sender: FDA-Public Use
  Company Number: PT-JANSSEN-2021-PEL-000879

PATIENT
  Age: 42 Year
  Sex: Female

DRUGS (2)
  1. BUPIVACAINE [Suspect]
     Active Substance: BUPIVACAINE
     Indication: Spinal anaesthesia
     Dosage: 7.5 MILLIGRAM
     Route: 037
  2. SUFENTANIL [Suspect]
     Active Substance: SUFENTANIL
     Indication: Spinal anaesthesia
     Dosage: 2.5 MICROGRAM
     Route: 037

REACTIONS (3)
  - Deafness neurosensory [Recovered/Resolved]
  - Maternal exposure during delivery [Unknown]
  - Product use issue [Unknown]
